FAERS Safety Report 6794694-3 (Version None)
Quarter: 2010Q2

REPORT INFORMATION
  Report Type: 
  Country: None (occurrence: None)
  Receive Date: 20100625
  Receipt Date: 20100616
  Transmission Date: 20101027
  Serious: Yes (Death)
  Sender: FDA-Public Use
  Company Number: CR-NOVOPROD-310259

PATIENT
  Age: 25 Year
  Sex: Male

DRUGS (1)
  1. NOVOSEVEN [Suspect]
     Indication: SURGERY
     Dosage: 9 PIECES

REACTIONS (1)
  - CARDIAC FAILURE [None]
